FAERS Safety Report 18517301 (Version 1)
Quarter: 2020Q4

REPORT INFORMATION
  Report Type: Spontaneous
  Country: US (occurrence: US)
  Receive Date: 20201118
  Receipt Date: 20201118
  Transmission Date: 20210114
  Serious: Yes (Life-Threatening, Hospitalization)
  Sender: FDA-Public Use
  Company Number: None

PATIENT
  Age: 78 Year
  Sex: Male

DRUGS (2)
  1. RIVAROXABAN [Suspect]
     Active Substance: RIVAROXABAN
  2. HYDRALAZINE [Suspect]
     Active Substance: HYDRALAZINE HYDROCHLORIDE

REACTIONS (6)
  - Atrial fibrillation [None]
  - Haemoptysis [None]
  - Vasculitis [None]
  - Chronic kidney disease [None]
  - Respiratory failure [None]
  - Pneumonia [None]

NARRATIVE: CASE EVENT DATE: 20200318
